FAERS Safety Report 17514423 (Version 2)
Quarter: 2020Q4

REPORT INFORMATION
  Report Type: Spontaneous
  Country: US (occurrence: US)
  Receive Date: 20200307
  Receipt Date: 20201223
  Transmission Date: 20210113
  Serious: Yes (Disabling)
  Sender: FDA-Public Use
  Company Number: US-TEVA-2020-US-1194488

PATIENT
  Age: 58 Year
  Sex: Female

DRUGS (10)
  1. EXEMESTANE. [Concomitant]
     Active Substance: EXEMESTANE
     Dates: start: 20170910
  2. ALPRAZOLAM. [Concomitant]
     Active Substance: ALPRAZOLAM
     Dates: start: 201611, end: 2019
  3. PERJETA [Concomitant]
     Active Substance: PERTUZUMAB
     Indication: BREAST CANCER FEMALE
     Dosage: DOSAGE: UNKNOWN; NUMBER OF CYCLES: 03; EVERY THREE WEEKS
     Route: 065
     Dates: start: 20161202, end: 20170208
  4. PARAPLATIN [Concomitant]
     Active Substance: CARBOPLATIN
     Indication: BREAST CANCER FEMALE
     Dosage: DOSAGE: UNKNOWN; NUMBER OF CYCLES: 03; EVERY THREE WEEKS
     Route: 065
     Dates: start: 20161202, end: 20170208
  5. TRASTUZUMAB. [Concomitant]
     Active Substance: TRASTUZUMAB
     Indication: BREAST CANCER FEMALE
     Dosage: DOSAGE: UNKNOWN; NUMBER OF CYCLES: 03; EVERY THREE WEEKS
     Route: 065
     Dates: start: 20161202, end: 20170208
  6. FISH OIL [Concomitant]
     Active Substance: FISH OIL
     Dates: start: 201607, end: 201612
  7. RESTORIL [Concomitant]
     Active Substance: TEMAZEPAM
     Dates: start: 201611
  8. UNISOM SLEEPTABS [Concomitant]
     Active Substance: DOXYLAMINE SUCCINATE
     Dates: start: 2009
  9. DOCETAXEL SANDOZ [Suspect]
     Active Substance: DOCETAXEL
     Indication: BREAST CANCER FEMALE
     Dosage: DOSAGE: 75MG/M2 X1, 65 MG/M3 X 1, 55 MG/M2 X1; NUMBER OF CYCLES: 03; EVERY THREE WEEKS
     Route: 065
     Dates: start: 20161202, end: 20170208
  10. DOCETAXEL HOSPIRA [Suspect]
     Active Substance: DOCETAXEL
     Indication: BREAST CANCER FEMALE
     Dosage: DOSAGE: 75MG/M2 X1, 65 MG/M3 X 1, 55 MG/M2 X1; NUMBER OF CYCLES: 03; EVERY THREE WEEKS
     Route: 065
     Dates: start: 20161202, end: 20170208

REACTIONS (4)
  - Alopecia areata [Not Recovered/Not Resolved]
  - Madarosis [Not Recovered/Not Resolved]
  - Hair texture abnormal [Not Recovered/Not Resolved]
  - Hair colour changes [Not Recovered/Not Resolved]

NARRATIVE: CASE EVENT DATE: 20170907
